FAERS Safety Report 26100030 (Version 1)
Quarter: 2025Q4

REPORT INFORMATION
  Report Type: Spontaneous
  Country: US (occurrence: US)
  Receive Date: 20251128
  Receipt Date: 20251128
  Transmission Date: 20260118
  Serious: Yes (Other)
  Sender: UNICHEM
  Company Number: US-UNICHEM LABORATORIES LIMITED-UNI-2025-US-002276

PATIENT

DRUGS (1)
  1. AMLODIPINE BESYLATE [Suspect]
     Active Substance: AMLODIPINE BESYLATE
     Indication: Hypertension
     Dosage: 5 MILLIGRAM, QD
     Route: 065
     Dates: end: 20250506

REACTIONS (6)
  - Anxiety [Unknown]
  - Vision blurred [Unknown]
  - Dyschromatopsia [Unknown]
  - Disturbance in attention [Unknown]
  - Dyspnoea [Unknown]
  - Product substitution issue [Unknown]
